FAERS Safety Report 10159061 (Version 1)
Quarter: 2014Q2

REPORT INFORMATION
  Report Type: Spontaneous
  Country: GB (occurrence: GB)
  Receive Date: 20140508
  Receipt Date: 20140508
  Transmission Date: 20141212
  Serious: Yes (Hospitalization)
  Sender: FDA-Public Use
  Company Number: GB-DRREDDYS-GER/UKI/14/0040057

PATIENT
  Age: 39 Year
  Sex: Female

DRUGS (6)
  1. SERTRALINE [Suspect]
     Indication: DEPRESSION
     Route: 048
     Dates: start: 20140213
  2. SERTRALINE [Suspect]
     Route: 048
     Dates: end: 20140414
  3. FERROUS SULPHATE [Concomitant]
     Indication: ANAEMIA
     Route: 048
     Dates: end: 20140315
  4. FULTIUM- D3 [Concomitant]
     Indication: VITAMIN D DEFICIENCY
     Route: 048
     Dates: end: 20140315
  5. PROCYCLIDINE [Concomitant]
     Indication: PRODUCT USED FOR UNKNOWN INDICATION
     Route: 048
     Dates: end: 20140324
  6. RISPERIDONE [Concomitant]
     Indication: PSYCHOTIC DISORDER
     Route: 048
     Dates: end: 20140324

REACTIONS (2)
  - Erythema multiforme [Not Recovered/Not Resolved]
  - Rash pruritic [Not Recovered/Not Resolved]
